FAERS Safety Report 6190141-3 (Version None)
Quarter: 2009Q2

REPORT INFORMATION
  Report Type: 
  Country: None (occurrence: None)
  Receive Date: 20090513
  Receipt Date: 20090513
  Transmission Date: 20091009
  Serious: Yes (Other)
  Sender: FDA-Public Use
  Company Number: None

PATIENT
  Age: 6 Year
  Sex: Male
  Weight: 22.3 kg

DRUGS (1)
  1. LORAZEPAM [Suspect]
     Indication: CONVULSION
     Dosage: 1MG PRN, UP TO 3 X DAY SL
     Route: 060
     Dates: start: 20090416, end: 20090512

REACTIONS (2)
  - PRODUCT SOLUBILITY ABNORMAL [None]
  - PRODUCT SUBSTITUTION ISSUE [None]
